FAERS Safety Report 17243085 (Version 1)
Quarter: 2020Q1

REPORT INFORMATION
  Report Type: Spontaneous
  Country: US (occurrence: US)
  Receive Date: 20200107
  Receipt Date: 20200107
  Transmission Date: 20200409
  Serious: No
  Sender: FDA-Public Use
  Company Number: US-CURIUM-199500074

PATIENT

DRUGS (2)
  1. SODIUM OXIDRONATE [Suspect]
     Active Substance: OXIDRONATE DISODIUM
  2. ULTRA-TECHNEKOW DTE [Suspect]
     Active Substance: TECHNETIUM TC-99M SODIUM PERTECHNETATE
     Dosage: 20 MCI, UNK

REACTIONS (3)
  - Radioisotope scan abnormal [Not Recovered/Not Resolved]
  - Drug ineffective [Not Recovered/Not Resolved]
  - Wrong product administered [Recovered/Resolved]
